FAERS Safety Report 5657986-7 (Version None)
Quarter: 2008Q1

REPORT INFORMATION
  Report Type: 
  Country: None (occurrence: None)
  Receive Date: 20080310
  Receipt Date: 20080307
  Transmission Date: 20080703
  Serious: Yes (Life-Threatening)
  Sender: FDA-Public Use
  Company Number: PHBS2008IT02939

PATIENT
  Age: 29 Year
  Sex: Female

DRUGS (2)
  1. VOLTAREN [Suspect]
     Indication: NECK PAIN
     Dosage: 75 MG, ONCE/SINGLE
     Route: 030
     Dates: start: 20080301, end: 20080301
  2. NIMESULIDE [Concomitant]

REACTIONS (3)
  - ERYTHEMA [None]
  - HYPOTENSION [None]
  - LOSS OF CONSCIOUSNESS [None]
